FAERS Safety Report 9854968 (Version 3)
Quarter: 2014Q1

REPORT INFORMATION
  Report Type: Report from Study
  Country: JP (occurrence: JP)
  Receive Date: 20140130
  Receipt Date: 20140320
  Transmission Date: 20141002
  Serious: Yes (Hospitalization)
  Sender: FDA-Public Use
  Company Number: JP-ROCHE-1339933

PATIENT
  Age: 67 Year
  Sex: Male
  Weight: 56.2 kg

DRUGS (21)
  1. BLINDED PERTUZUMAB [Suspect]
     Indication: HER-2 POSITIVE GASTRIC CANCER
     Dosage: BLINDED DOSE?MOST RECENT DOSE PRIOR TO EVENT: 21/JAN/2014
     Route: 042
     Dates: start: 20140121
  2. BLINDED PERTUZUMAB [Suspect]
     Dosage: BLINDED DOSE
     Route: 042
     Dates: start: 20140220
  3. TRASTUZUMAB [Suspect]
     Indication: HER-2 POSITIVE GASTRIC CANCER
     Dosage: MOST RECENT DOSE PRIOR TO EVENT: 21/JAN/2014
     Route: 042
     Dates: start: 20140121
  4. TRASTUZUMAB [Suspect]
     Route: 042
     Dates: start: 20140220
  5. CAPECITABINE [Suspect]
     Indication: HER-2 POSITIVE GASTRIC CANCER
     Route: 048
     Dates: start: 20140121, end: 20140126
  6. CAPECITABINE [Suspect]
     Route: 048
     Dates: start: 20140220
  7. CISPLATIN [Suspect]
     Indication: HER-2 POSITIVE GASTRIC CANCER
     Dosage: MOPST RECENT DOSE PRIOR TO EVENT RECEIVED ON 21/JAN/2014
     Route: 042
     Dates: start: 20140121, end: 20140121
  8. CISPLATIN [Suspect]
     Route: 042
     Dates: start: 20140220
  9. RENACET [Concomitant]
     Dosage: DRUG REPORTED AS : RENACETO, INDICATION: HYDRATION
     Route: 042
     Dates: start: 20140120
  10. REPLAS [Concomitant]
     Dosage: INDICATION: HYDRATION
     Route: 042
     Dates: start: 20140121
  11. POTASSIUM CHLORIDE [Concomitant]
     Indication: PREMEDICATION
     Route: 042
     Dates: start: 20140121
  12. MAGNESIUM SULFATE [Concomitant]
     Indication: PREMEDICATION
     Route: 042
     Dates: start: 20140121
  13. PRIMPERAN [Concomitant]
     Indication: PREMEDICATION
     Route: 042
     Dates: start: 20140121
  14. PRIMPERAN [Concomitant]
     Indication: NAUSEA
     Dosage: SELECT IF ONGOING=NO
     Route: 042
     Dates: start: 20140126, end: 20140126
  15. LASIX [Concomitant]
     Indication: PREMEDICATION
     Route: 042
     Dates: start: 20140121
  16. ALOXI [Concomitant]
     Indication: PREMEDICATION
     Route: 042
     Dates: start: 20140121
  17. DEXART [Concomitant]
     Indication: PREMEDICATION
     Route: 042
     Dates: start: 20140121
  18. EMEND [Concomitant]
     Indication: PREMEDICATION
     Route: 048
     Dates: start: 20140121
  19. PURSENNID [Concomitant]
     Indication: CONSTIPATION
     Route: 048
     Dates: start: 20140122
  20. NAUZELIN [Concomitant]
     Indication: NAUSEA
     Route: 048
     Dates: start: 20140123
  21. NAUZELIN [Concomitant]
     Route: 065
     Dates: start: 20140125, end: 20140125

REACTIONS (1)
  - Iliac artery occlusion [Recovering/Resolving]
